FAERS Safety Report 8502524 (Version 4)
Quarter: 2013Q1

REPORT INFORMATION
  Report Type: Report from Study
  Country: CA (occurrence: CA)
  Receive Date: 20120410
  Receipt Date: 20130311
  Transmission Date: 20140127
  Serious: Yes (Life-Threatening, Hospitalization)
  Sender: FDA-Public Use
  Company Number: CA-CELGENEUS-028-C5013-12021231

PATIENT
  Age: 54 Year
  Sex: Male
  Weight: 67.6 kg

DRUGS (22)
  1. CC-5013 [Suspect]
     Indication: CHRONIC LYMPHOCYTIC LEUKAEMIA
     Dosage: 15 MILLIGRAM
     Route: 048
     Dates: start: 20110222, end: 20110313
  2. CC-5013 [Suspect]
     Dosage: 10 MILLIGRAM
     Route: 048
     Dates: start: 20110321, end: 20110417
  3. CC-5013 [Suspect]
     Dosage: 15 MILLIGRAM
     Route: 048
     Dates: start: 20110418, end: 20110515
  4. CC-5013 [Suspect]
     Dosage: 20 MILLIGRAM
     Route: 048
     Dates: start: 20110517, end: 20110612
  5. CC-5013 [Suspect]
     Dosage: 15 MILLIGRAM
     Route: 048
     Dates: start: 20110711, end: 20110905
  6. CC-5013 [Suspect]
     Dosage: 20 MILLIGRAM
     Route: 048
     Dates: start: 20110906, end: 20110913
  7. CC-5013 [Suspect]
     Dosage: 15 MILLIGRAM
     Route: 048
     Dates: start: 20111031, end: 20111106
  8. CC-5013 [Suspect]
     Dosage: 10 MILLIGRAM
     Route: 048
     Dates: start: 20111128, end: 20111226
  9. CC-5013 [Suspect]
     Dosage: 10 MILLIGRAM
     Route: 048
     Dates: start: 20120104, end: 20120131
  10. FRAGMIN [Concomitant]
     Indication: PROPHYLAXIS
     Dosage: 2500 IU (INTERNATIONAL UNIT)
     Route: 058
     Dates: start: 201201
  11. FRAGMIN [Concomitant]
     Indication: DEEP VEIN THROMBOSIS
  12. NEUPOGEN [Concomitant]
     Indication: NEUTROPENIA
     Dosage: 300 MICROGRAM
     Route: 058
     Dates: start: 20110611
  13. ALLOPURINOL [Concomitant]
     Indication: PROPHYLAXIS
     Dosage: 300 MILLIGRAM
     Route: 048
     Dates: start: 20110218
  14. METRONIDAZOLE [Concomitant]
     Indication: CLOSTRIDIUM DIFFICILE INFECTION
     Dosage: 1500 MILLIGRAM
     Route: 048
     Dates: start: 20120204, end: 20120214
  15. GENTAMYCIN [Concomitant]
     Indication: ESCHERICHIA INFECTION
     Route: 065
     Dates: start: 20120202, end: 20120303
  16. CEFTAZIDIME [Concomitant]
     Indication: ESCHERICHIA INFECTION
     Route: 065
     Dates: start: 20120202, end: 20120303
  17. VANCOMYCIN [Concomitant]
     Indication: ESCHERICHIA INFECTION
     Route: 065
     Dates: start: 20120202, end: 20120202
  18. RED BLOOD CELLS [Concomitant]
     Indication: ANAEMIA
     Dosage: 4 UNITS
     Route: 065
     Dates: start: 20120204, end: 20120205
  19. PLATELET [Concomitant]
     Indication: ANAEMIA
     Dosage: 3 UNITS
     Route: 065
     Dates: start: 20120203, end: 20120205
  20. FRESH FROZEN PLASMA [Concomitant]
     Indication: HYPOTENSION
     Dosage: 8 UNITS
     Route: 065
     Dates: start: 20120203, end: 20120204
  21. G-CSF [Concomitant]
     Indication: NERVE STIMULATION TEST
     Route: 065
     Dates: start: 20120203, end: 20120302
  22. IVIG [Concomitant]
     Indication: INFECTION
     Dosage: 30 GRAM
     Route: 041
     Dates: start: 20120206, end: 20120206

REACTIONS (5)
  - Septic shock [Recovered/Resolved]
  - Febrile neutropenia [Recovered/Resolved]
  - Thrombocytopenia [Recovered/Resolved]
  - Escherichia bacteraemia [Recovered/Resolved]
  - Clostridium difficile colitis [Recovered/Resolved]
